FAERS Safety Report 5693762-7 (Version None)
Quarter: 2008Q2

REPORT INFORMATION
  Report Type: 
  Country: None (occurrence: None)
  Receive Date: 20080403
  Receipt Date: 20080324
  Transmission Date: 20081010
  Serious: Yes (Hospitalization)
  Sender: FDA-Public Use
  Company Number: CN-JNJFOC-20080106448

PATIENT
  Sex: Female

DRUGS (4)
  1. RISPERDAL [Suspect]
     Route: 048
  2. RISPERDAL [Suspect]
     Indication: SCHIZOPHRENIA
     Route: 048
  3. CITALOPRAM HYDROBROMIDE [Concomitant]
     Indication: DEPRESSION
  4. VENLAFAXINE HYDROCHLORIDE [Concomitant]
     Indication: DEPRESSION

REACTIONS (3)
  - LEUKOPENIA [None]
  - MENSTRUATION IRREGULAR [None]
  - OVARIAN CYST [None]
